FAERS Safety Report 5969321-5 (Version None)
Quarter: 2008Q4

REPORT INFORMATION
  Report Type: 
  Country: None (occurrence: None)
  Receive Date: 20081126
  Receipt Date: 20081114
  Transmission Date: 20090506
  Serious: Yes (Hospitalization, Other)
  Sender: FDA-Public Use
  Company Number: FR-PFIZER INC-2007039548

PATIENT
  Age: 47 Year
  Sex: Male

DRUGS (2)
  1. CHAMPIX [Suspect]
     Indication: EX-TOBACCO USER
  2. LIPANTHYL [Concomitant]
     Indication: HYPERCHOLESTEROLAEMIA

REACTIONS (2)
  - EPISTAXIS [None]
  - NEUTROPENIA [None]
